FAERS Safety Report 8401244-4 (Version None)
Quarter: 2012Q2

REPORT INFORMATION
  Report Type: 
  Country: None (occurrence: None)
  Receive Date: 20120525
  Receipt Date: 20120515
  Transmission Date: 20120825
  Serious: Yes (Other)
  Sender: FDA-Public Use
  Company Number: US-2012-10559

PATIENT
  Age: 11 Year
  Sex: Female

DRUGS (2)
  1. BUSULFAN [Suspect]
     Dosage: 16 MG/KG
  2. CYCLOPHOSPHAMIDE [Suspect]
     Indication: BONE MARROW CONDITIONING REGIMEN
     Dosage: 120 MG/KG

REACTIONS (1)
  - PRIMARY HYPOGONADISM [None]
